FAERS Safety Report 9091049 (Version 2)
Quarter: 2013Q1

REPORT INFORMATION
  Report Type: Spontaneous
  Country: US (occurrence: US)
  Receive Date: 20130131
  Receipt Date: 20130307
  Transmission Date: 20140127
  Serious: Yes (Other)
  Sender: FDA-Public Use
  Company Number: US-009507513-1301USA007805

PATIENT
  Sex: Female

DRUGS (3)
  1. PEGINTRON [Suspect]
     Indication: HEPATITIS C
     Dosage: UNK
     Dates: start: 20130113
  2. RIBAVIRIN [Suspect]
     Indication: HEPATITIS C
     Dosage: UNK
     Route: 048
     Dates: start: 20130113
  3. VICTRELIS [Suspect]
     Indication: HEPATITIS C
     Dosage: UNK
     Route: 048
     Dates: start: 20130210

REACTIONS (21)
  - Aphonia [Unknown]
  - Muscle spasms [Unknown]
  - Pyrexia [Unknown]
  - Chills [Unknown]
  - Disturbance in attention [Unknown]
  - Memory impairment [Unknown]
  - Memory impairment [Unknown]
  - Pyrexia [Unknown]
  - Influenza like illness [Unknown]
  - Myalgia [Unknown]
  - Fatigue [Not Recovered/Not Resolved]
  - Nausea [Not Recovered/Not Resolved]
  - Dyspepsia [Not Recovered/Not Resolved]
  - Muscle spasms [Unknown]
  - Malaise [Unknown]
  - Pyrexia [Unknown]
  - Laryngitis [Unknown]
  - Sinus congestion [Unknown]
  - Cough [Unknown]
  - Decreased appetite [Unknown]
  - Viral infection [Unknown]
